FAERS Safety Report 19000343 (Version 1)
Quarter: 2021Q1

REPORT INFORMATION
  Report Type: Spontaneous
  Country: US (occurrence: US)
  Receive Date: 20210311
  Receipt Date: 20210311
  Transmission Date: 20210420
  Serious: Yes (Life-Threatening)
  Sender: FDA-Public Use
  Company Number: None

PATIENT
  Age: 74 Year
  Sex: Male
  Weight: 75 kg

DRUGS (1)
  1. METHADONE (METHADONE HCL 100MG/20ML SOLN,ORAL) [Suspect]
     Active Substance: METHADONE HYDROCHLORIDE
     Indication: DRUG USE DISORDER
     Route: 048
     Dates: start: 20180111, end: 20201124

REACTIONS (13)
  - Blood potassium decreased [None]
  - Abdominal infection [None]
  - Escherichia bacteraemia [None]
  - Ventricular tachycardia [None]
  - Pancreatic carcinoma [None]
  - Mental status changes [None]
  - Metastases to liver [None]
  - Cardiac arrest [None]
  - Leukocytosis [None]
  - Unresponsive to stimuli [None]
  - Metastases to central nervous system [None]
  - Pulse abnormal [None]
  - Vomiting [None]

NARRATIVE: CASE EVENT DATE: 20201124
